FAERS Safety Report 13620814 (Version 10)
Quarter: 2019Q3

REPORT INFORMATION
  Report Type: Report from Study
  Country: DE (occurrence: DE)
  Receive Date: 20170607
  Receipt Date: 20190813
  Transmission Date: 20191004
  Serious: Yes (Hospitalization, Other)
  Sender: FDA-Public Use
  Company Number: PHHY2017DE069058

PATIENT
  Age: 66 Year
  Sex: Female
  Weight: 85 kg

DRUGS (4)
  1. VOTRIENT [Suspect]
     Active Substance: PAZOPANIB HYDROCHLORIDE
     Indication: METASTATIC RENAL CELL CARCINOMA
     Dosage: 600 MG, QD
     Route: 048
     Dates: start: 20170410, end: 20170523
  2. METAMIZOLE [Concomitant]
     Active Substance: METAMIZOLE
     Indication: INTERVERTEBRAL DISC DEGENERATION
     Dosage: 500 MG, PRN
     Route: 048
  3. DALTEPARIN [Concomitant]
     Active Substance: DALTEPARIN
     Indication: PROPHYLAXIS
     Dosage: 5000 OT, QD
     Route: 058
     Dates: end: 20170427
  4. CODEINE [Concomitant]
     Active Substance: CODEINE
     Indication: COUGH
     Dosage: 15 MG, PRN
     Route: 048
     Dates: start: 201702

REACTIONS (22)
  - Jaundice [Unknown]
  - Mitral valve incompetence [Not Recovered/Not Resolved]
  - Left ventricular dysfunction [Not Recovered/Not Resolved]
  - Drug-induced liver injury [Not Recovered/Not Resolved]
  - Circulatory collapse [Recovered/Resolved]
  - Troponin T increased [Unknown]
  - Gamma-glutamyltransferase increased [Not Recovered/Not Resolved]
  - C-reactive protein increased [Unknown]
  - Blood alkaline phosphatase increased [Not Recovered/Not Resolved]
  - Aspartate aminotransferase increased [Unknown]
  - Chest discomfort [Unknown]
  - Tachycardia [Recovered/Resolved]
  - Tachycardia induced cardiomyopathy [Not Recovered/Not Resolved]
  - Chromaturia [Unknown]
  - Diastolic dysfunction [Not Recovered/Not Resolved]
  - Blood creatinine increased [Unknown]
  - Pleural effusion [Not Recovered/Not Resolved]
  - Liver function test abnormal [Unknown]
  - Alanine aminotransferase increased [Unknown]
  - Fatigue [Unknown]
  - Atrial fibrillation [Not Recovered/Not Resolved]
  - Diarrhoea [Not Recovered/Not Resolved]

NARRATIVE: CASE EVENT DATE: 20170424
